FAERS Safety Report 20999308 (Version 1)
Quarter: 2022Q2

REPORT INFORMATION
  Report Type: Report from Study
  Country: FR (occurrence: FR)
  Receive Date: 20220623
  Receipt Date: 20220623
  Transmission Date: 20220720
  Serious: Yes (Death)
  Sender: FDA-Public Use
  Company Number: FR-PFIZER INC-PV202200005647

PATIENT

DRUGS (9)
  1. MITOXANTRONE HYDROCHLORIDE [Suspect]
     Active Substance: MITOXANTRONE HYDROCHLORIDE
     Indication: Acute myeloid leukaemia
     Dosage: INDUCTION, DAY 3, 4 AND 5
  2. MITOXANTRONE HYDROCHLORIDE [Suspect]
     Active Substance: MITOXANTRONE HYDROCHLORIDE
     Dosage: CONSOLIDATION, DAY 1, 15, 29, 43
  3. CYTARABINE [Suspect]
     Active Substance: CYTARABINE
     Indication: Acute myeloid leukaemia
     Dosage: INDUCTION, CONTINUOUS INFUSION, 100 MG/M2/DAY, DAY 1, 2
  4. CYTARABINE [Suspect]
     Active Substance: CYTARABINE
     Dosage: INDUCTION, DAY 1
     Route: 037
  5. CYTARABINE [Suspect]
     Active Substance: CYTARABINE
     Dosage: INDUCTION, BOLUS, 100 MG/M2/12H, DAY 3 TO 8
  6. CYTARABINE [Suspect]
     Active Substance: CYTARABINE
     Dosage: CONSOLIDATION, BOLUS, DAY 1 TO 4, 8 TO 11, 15 TO 18, 29 TO 32, 36 TO 39, 43 TO 46
  7. CYTARABINE [Suspect]
     Active Substance: CYTARABINE
     Dosage: CONSOLIDATION, DAY 1, 15, 29, 43
     Route: 037
  8. VINCRISTINE SULFATE [Suspect]
     Active Substance: VINCRISTINE SULFATE
     Indication: Acute myeloid leukaemia
     Dosage: CONSOLIDATION, DAY 1, 15, 29, 43
  9. THIOGUANINE [Suspect]
     Active Substance: THIOGUANINE
     Indication: Acute myeloid leukaemia
     Dosage: CONSOLIDATION, DAY 1 TO 46

REACTIONS (1)
  - Bone marrow failure [Fatal]
